FAERS Safety Report 8124306-8 (Version None)
Quarter: 2012Q1

REPORT INFORMATION
  Report Type: 
  Country: None (occurrence: None)
  Receive Date: 20120209
  Receipt Date: 20120131
  Transmission Date: 20120608
  Serious: No
  Sender: FDA-Public Use
  Company Number: US-B.I. PHARMACEUTICALS,INC./RIDGEFIELD-2012-BP-01870BP

PATIENT
  Sex: Male

DRUGS (16)
  1. PRADAXA [Suspect]
     Indication: ATRIAL FIBRILLATION
     Dosage: 300 MG
     Route: 048
     Dates: start: 20111101
  2. MULTI-VITAMIN [Concomitant]
     Indication: SUPPLEMENTATION THERAPY
  3. PROCERA [Concomitant]
     Indication: SUPPLEMENTATION THERAPY
  4. FISH OIL [Concomitant]
     Indication: SUPPLEMENTATION THERAPY
  5. PRIMIDONE [Concomitant]
     Indication: TREMOR
  6. DIGOXIN [Concomitant]
     Indication: ATRIAL FIBRILLATION
  7. PRILOSEC [Concomitant]
     Indication: GASTROOESOPHAGEAL REFLUX DISEASE
  8. VITAMIN D [Concomitant]
     Indication: SUPPLEMENTATION THERAPY
  9. CARDIZEM [Concomitant]
     Indication: HYPERTENSION
  10. LISINOPRIL [Concomitant]
     Indication: HYPERTENSION
  11. COQ10 [Concomitant]
     Indication: SUPPLEMENTATION THERAPY
  12. METFORMIN HCL [Concomitant]
     Indication: DIABETES MELLITUS
  13. GLIPIZIDE [Concomitant]
     Indication: DIABETES MELLITUS
  14. NATEGLINIDE [Concomitant]
     Indication: DIABETES MELLITUS
  15. VITAMIN E [Concomitant]
     Indication: SUPPLEMENTATION THERAPY
  16. AVODART [Concomitant]
     Indication: BENIGN PROSTATIC HYPERPLASIA

REACTIONS (1)
  - WEIGHT DECREASED [None]
